FAERS Safety Report 10365604 (Version 1)
Quarter: 2014Q3

REPORT INFORMATION
  Report Type: Spontaneous
  Country: CN (occurrence: None)
  Receive Date: 20140804
  Receipt Date: 20140804
  Transmission Date: 20150326
  Serious: Yes (Hospitalization, Other)
  Sender: FDA-Public Use
  Company Number: VAL_03238_2014

PATIENT
  Age: 65 Year
  Sex: Male

DRUGS (3)
  1. PREDNISONE (PREDNISONE) [Suspect]
     Active Substance: PREDNISONE
     Indication: PRODUCT USED FOR UNKNOWN INDICATION
     Dosage: 60 MG , PO , DAILTY (UNKNOWN - UNTIL NOT CONTINUING THERAPY DATES)
     Route: 048
  2. CYCLOPHOSPHAMIDE (CYCLOPHOSPHAMIDE) [Suspect]
     Active Substance: CYCLOPHOSPHAMIDE
     Indication: PRODUCT USED FOR UNKNOWN INDICATION
     Dosage: 100 MG , DAILY UNKNOWN THERAPY DATES
  3. BENZAPRIL [Suspect]
     Active Substance: BENAZEPRIL\BENAZEPRIL HYDROCHLORIDE
     Indication: PRODUCT USED FOR UNKNOWN INDICATION
     Dosage: (20 MG , DAILY) (UNKNOWN - UNTIL NOT CONTINUIUNG)

REACTIONS (9)
  - Glomerulonephritis membranous [None]
  - Hypotension [None]
  - Weight decreased [None]
  - Zygomycosis [None]
  - Lower respiratory tract infection fungal [None]
  - Haemoglobin decreased [None]
  - Pleural effusion [None]
  - General physical health deterioration [None]
  - Nephrotic syndrome [None]
